FAERS Safety Report 8406446-9 (Version None)
Quarter: 2012Q2

REPORT INFORMATION
  Report Type: 
  Country: None (occurrence: None)
  Receive Date: 20120604
  Receipt Date: 20120522
  Transmission Date: 20120825
  Serious: Yes (Hospitalization)
  Sender: FDA-Public Use
  Company Number: FR-MILLENNIUM PHARMACEUTICALS, INC.-2012-03741

PATIENT

DRUGS (7)
  1. REVLIMID [Suspect]
     Indication: MULTIPLE MYELOMA
     Dosage: 25 MG, UNK
     Route: 048
     Dates: start: 20090625
  2. VELCADE [Suspect]
     Indication: MULTIPLE MYELOMA
     Dosage: 2.6 UNK, UNK
     Route: 042
     Dates: start: 20090415, end: 20090520
  3. VELCADE [Suspect]
     Dosage: 2 MG, UNK
     Route: 042
     Dates: start: 20100126, end: 20110329
  4. REVLIMID [Suspect]
     Dosage: 20 MG, UNK
     Route: 048
     Dates: start: 20100305, end: 20100505
  5. THALIDOMIDE [Suspect]
     Indication: MULTIPLE MYELOMA
     Dosage: 100 MG, UNK
     Route: 048
     Dates: start: 20100831, end: 20110329
  6. DEXAMETHASONE [Suspect]
     Indication: MULTIPLE MYELOMA
     Dosage: 40 MG, UNK
     Route: 042
     Dates: start: 20090415, end: 20110329
  7. ALKERAN [Suspect]
     Indication: MULTIPLE MYELOMA
     Dosage: 18 MG, UNK
     Route: 042
     Dates: start: 20090415, end: 20100926

REACTIONS (1)
  - ADENOCARCINOMA [None]
